FAERS Safety Report 5986049-6 (Version None)
Quarter: 2008Q4

REPORT INFORMATION
  Report Type: 
  Country: None (occurrence: None)
  Receive Date: 20081209
  Receipt Date: 20081111
  Transmission Date: 20090506
  Serious: Yes (Hospitalization, Other)
  Sender: FDA-Public Use
  Company Number: AT-ELI_LILLY_AND_COMPANY-AT200811003243

PATIENT
  Age: 27 Year
  Sex: Female

DRUGS (2)
  1. ZYPREXA [Suspect]
     Indication: SCHIZOPHRENIA, PARANOID TYPE
     Dosage: UNK, UNKNOWN
     Route: 065
  2. ZYPREXA [Suspect]
     Dosage: 15 MG, UNKNOWN
     Route: 065

REACTIONS (3)
  - DRUG EXPOSURE DURING PREGNANCY [None]
  - GESTATIONAL DIABETES [None]
  - PSYCHOTIC DISORDER [None]
